FAERS Safety Report 8601147-6 (Version None)
Quarter: 2012Q3

REPORT INFORMATION
  Report Type: 
  Country: None (occurrence: None)
  Receive Date: 20120817
  Receipt Date: 20120808
  Transmission Date: 20120928
  Serious: Yes (Hospitalization, Other)
  Sender: FDA-Public Use
  Company Number: PHHO2011FR07575

PATIENT
  Sex: Male
  Weight: 68 kg

DRUGS (14)
  1. CELLCEPT [Suspect]
     Indication: RENAL TRANSPLANT
     Dosage: 2 G, QD
     Route: 048
     Dates: start: 20110213
  2. ARANESP [Concomitant]
  3. ACETAMINOPHEN [Concomitant]
  4. EUPRESSYL [Concomitant]
  5. PREDNISOLONE [Suspect]
     Indication: RENAL TRANSPLANT
     Dosage: 10 MG, DAILY
     Route: 048
  6. NO TREATMENT RECEIVED [Suspect]
     Indication: RENAL TRANSPLANT
     Dosage: UNK
  7. BACTRIM [Concomitant]
  8. KAYEXALATE [Concomitant]
  9. OMEPRAZOLE [Concomitant]
  10. BISOPROLOL FUMARATE [Concomitant]
  11. VALACYCLOVIR HYDROCHLORIDE [Concomitant]
  12. ALPRAZOLAM [Concomitant]
  13. NEORAL [Suspect]
     Indication: RENAL TRANSPLANT
     Dosage: 160 MG, QD
     Route: 048
     Dates: start: 20110213
  14. CORDARONE [Concomitant]

REACTIONS (5)
  - OEDEMA PERIPHERAL [None]
  - RENAL FAILURE ACUTE [None]
  - URINARY TRACT INFECTION PSEUDOMONAL [None]
  - GENERAL PHYSICAL HEALTH DETERIORATION [None]
  - PROSTATE CANCER [None]
